FAERS Safety Report 5757911-4 (Version None)
Quarter: 2008Q2

REPORT INFORMATION
  Report Type: 
  Country: None (occurrence: None)
  Receive Date: 20080602
  Receipt Date: 20080602
  Transmission Date: 20081010
  Serious: Yes (Other)
  Sender: FDA-Public Use
  Company Number: None

PATIENT
  Age: 63 Year
  Sex: Female
  Weight: 72.5755 kg

DRUGS (1)
  1. MIRALAX [Suspect]
     Indication: CONSTIPATION
     Dosage: AS RECOMMENDED ON LABEL 1 X DAILY PO/ON + OFF
     Route: 048
     Dates: start: 20070101, end: 20080101

REACTIONS (1)
  - RASH [None]
